FAERS Safety Report 18953362 (Version 1)
Quarter: 2021Q1

REPORT INFORMATION
  Report Type: Spontaneous
  Country: SE (occurrence: JP)
  Receive Date: 20210301
  Receipt Date: 20210301
  Transmission Date: 20210420
  Serious: Yes (Other)
  Sender: FDA-Public Use
  Company Number: SE-MYLANLABS-2021M1011011

PATIENT
  Age: 65 Year
  Sex: Female

DRUGS (3)
  1. EVEROLIMUS. [Suspect]
     Active Substance: EVEROLIMUS
     Dosage: 0.75 MG, 2X/DAY
  2. PREDNISOLONE. [Suspect]
     Active Substance: PREDNISOLONE
     Indication: PRODUCT USED FOR UNKNOWN INDICATION
     Dosage: UNK
  3. EVEROLIMUS. [Suspect]
     Active Substance: EVEROLIMUS
     Indication: PROPHYLAXIS AGAINST TRANSPLANT REJECTION
     Dosage: 1 MG, 2X/DAY

REACTIONS (7)
  - Resorption bone increased [Unknown]
  - Pain [Unknown]
  - Osteonecrosis of jaw [Unknown]
  - Oroantral fistula [Unknown]
  - Weight decreased [Unknown]
  - Sinus perforation [Unknown]
  - Hypophagia [Unknown]
